FAERS Safety Report 5673686-1 (Version None)
Quarter: 2008Q1

REPORT INFORMATION
  Report Type: 
  Country: None (occurrence: None)
  Receive Date: 20080319
  Receipt Date: 20080313
  Transmission Date: 20080703
  Serious: Yes (Other)
  Sender: FDA-Public Use
  Company Number: MT-ABBOTT-08P-103-0439829-00

PATIENT
  Age: 73 Year
  Sex: Female
  Weight: 70 kg

DRUGS (4)
  1. KLACID XL [Suspect]
     Indication: UPPER RESPIRATORY TRACT INFECTION
     Route: 048
     Dates: start: 20080215, end: 20080218
  2. KLACID XL [Suspect]
  3. ACETYLSALICYLIC ACID [Concomitant]
     Indication: ANTICOAGULANT THERAPY
     Route: 048
  4. DIPYRIDAMOLE [Concomitant]
     Indication: ANTICOAGULANT THERAPY
     Route: 048

REACTIONS (3)
  - FLATULENCE [None]
  - INCONTINENCE [None]
  - NAUSEA [None]
